FAERS Safety Report 7039696-7 (Version None)
Quarter: 2010Q4

REPORT INFORMATION
  Report Type: 
  Country: None (occurrence: None)
  Receive Date: 20101012
  Receipt Date: 20100927
  Transmission Date: 20110411
  Serious: Yes (Hospitalization)
  Sender: FDA-Public Use
  Company Number: GB-MEDIMMUNE-MEDI-0011186

PATIENT
  Age: 12 Month
  Sex: Female
  Weight: 7.6 kg

DRUGS (1)
  1. SYNAGIS [Suspect]
     Route: 030
     Dates: start: 20091209, end: 20091209

REACTIONS (1)
  - RESPIRATORY SYNCYTIAL VIRUS INFECTION [None]
